FAERS Safety Report 22000563 (Version 3)
Quarter: 2023Q1

REPORT INFORMATION
  Report Type: Report from Study
  Country: BR (occurrence: BR)
  Receive Date: 20230216
  Receipt Date: 20230317
  Transmission Date: 20230418
  Serious: Yes (Other)
  Sender: FDA-Public Use
  Company Number: BR-JNJFOC-20230202744

PATIENT
  Age: 8 Decade
  Sex: Female

DRUGS (3)
  1. SIMPONI [Suspect]
     Active Substance: GOLIMUMAB
     Indication: Psoriatic arthropathy
     Dosage: DOSE STRENGTH OF SIMPONI AI USED (50MG VS 100 MG).
     Route: 058
     Dates: start: 202210
  2. SIMPONI [Suspect]
     Active Substance: GOLIMUMAB
     Indication: Rheumatoid arthritis
     Route: 058
     Dates: start: 20221121, end: 202212
  3. SIMPONI [Suspect]
     Active Substance: GOLIMUMAB
     Indication: Crohn^s disease

REACTIONS (10)
  - Anaphylactic shock [Unknown]
  - Joint swelling [Unknown]
  - Haematoma [Unknown]
  - Tremor [Unknown]
  - Arthralgia [Unknown]
  - Weight decreased [Unknown]
  - Hypotonia [Unknown]
  - Asthenia [Unknown]
  - Peripheral swelling [Unknown]
  - Drug ineffective [Unknown]
